FAERS Safety Report 6697801-6 (Version None)
Quarter: 2010Q2

REPORT INFORMATION
  Report Type: 
  Country: None (occurrence: None)
  Receive Date: 20100423
  Receipt Date: 20100412
  Transmission Date: 20101027
  Serious: Yes (Other)
  Sender: FDA-Public Use
  Company Number: FR-GDP-10407856

PATIENT
  Sex: Female
  Weight: 80 kg

DRUGS (1)
  1. METVIXIA [Suspect]
     Indication: POROKERATOSIS
     Dosage: (1 DF TOPICAL)
     Route: 061
     Dates: start: 20091218, end: 20091218

REACTIONS (4)
  - ERYTHEMA [None]
  - PAIN [None]
  - PHOTOSENSITIVITY REACTION [None]
  - SKIN OEDEMA [None]
